FAERS Safety Report 7762701-7 (Version None)
Quarter: 2011Q3

REPORT INFORMATION
  Report Type: 
  Country: None (occurrence: None)
  Receive Date: 20110920
  Receipt Date: 20110913
  Transmission Date: 20111222
  Serious: Yes (Other)
  Sender: FDA-Public Use
  Company Number: BE-PFIZER INC-2011216561

PATIENT
  Age: 77 Year
  Sex: Female

DRUGS (8)
  1. IBUFLAM [Concomitant]
  2. NEUPOGEN [Concomitant]
     Indication: FELTY'S SYNDROME
     Dosage: UNK
  3. LASIX [Concomitant]
  4. CEFTAZIDIME [Concomitant]
  5. ALDACTONE [Concomitant]
     Indication: DIURETIC THERAPY
  6. PLAVIX [Concomitant]
     Indication: DIURETIC THERAPY
  7. VFEND [Suspect]
     Indication: ASPERGILLOSIS
     Route: 041
  8. BUMETANIDE [Concomitant]
     Indication: DIURETIC THERAPY

REACTIONS (3)
  - PLEURAL EFFUSION [None]
  - LIVER DISORDER [None]
  - OEDEMA PERIPHERAL [None]
